FAERS Safety Report 9236315 (Version 1)
Quarter: 2013Q2

REPORT INFORMATION
  Report Type: Spontaneous
  Country: US (occurrence: US)
  Receive Date: 20130417
  Receipt Date: 20130417
  Transmission Date: 20140414
  Serious: Yes (Hospitalization)
  Sender: FDA-Public Use
  Company Number: US-SANOFI-AVENTIS-2013SA038814

PATIENT
  Age: 61 Year
  Sex: Female

DRUGS (1)
  1. AUBAGIO [Suspect]
     Indication: MULTIPLE SCLEROSIS
     Dosage: PRODUCT END IN 5 WEEKS LATER AFTER START.
     Dates: start: 201301

REACTIONS (4)
  - Fall [Unknown]
  - Muscular weakness [Not Recovered/Not Resolved]
  - Sciatica [Not Recovered/Not Resolved]
  - Hand fracture [Not Recovered/Not Resolved]
